FAERS Safety Report 6336234-9 (Version None)
Quarter: 2009Q3

REPORT INFORMATION
  Report Type: 
  Country: None (occurrence: None)
  Receive Date: 20090901
  Receipt Date: 20090824
  Transmission Date: 20100115
  Serious: Yes (Other)
  Sender: FDA-Public Use
  Company Number: PHEH2009US09458

PATIENT
  Sex: Male

DRUGS (6)
  1. GLEEVEC [Suspect]
     Dosage: 400 MG, UNK
     Route: 065
     Dates: start: 20050101
  2. TASIGNA [Suspect]
     Dosage: 200 MG, QID
     Route: 065
  3. TASIGNA [Suspect]
     Dosage: 200 MG, TID
  4. TASIGNA [Suspect]
     Dosage: 200 MG, QD
  5. SPRYCEL [Suspect]
     Dosage: UNK, UNK
     Route: 065
  6. LISINOPRIL [Concomitant]
     Dosage: UNK, UNK
     Route: 065

REACTIONS (2)
  - FATIGUE [None]
  - LEUKOPENIA [None]
